FAERS Safety Report 20425553 (Version 1)
Quarter: 2022Q1

REPORT INFORMATION
  Report Type: Spontaneous
  Country: US (occurrence: US)
  Receive Date: 20220204
  Receipt Date: 20220204
  Transmission Date: 20220424
  Serious: No
  Sender: FDA-Public Use
  Company Number: US-EXELIXIS-CABO-21039216

PATIENT
  Sex: Female

DRUGS (5)
  1. CABOMETYX [Suspect]
     Active Substance: CABOZANTINIB S-MALATE
     Indication: Renal cancer
     Dosage: UNK
  2. LENVIMA [Suspect]
     Active Substance: LENVATINIB
     Indication: Renal cancer
     Dosage: 18 MG, QD
     Route: 048
     Dates: start: 20210226
  3. ALEVE [Concomitant]
     Active Substance: NAPROXEN SODIUM
  4. EVEROLIMUS [Concomitant]
     Active Substance: EVEROLIMUS
  5. TYLENOL [Concomitant]
     Active Substance: ACETAMINOPHEN

REACTIONS (3)
  - Dry mouth [Unknown]
  - Taste disorder [Unknown]
  - Dysphonia [Unknown]
